FAERS Safety Report 11176012 (Version 2)
Quarter: 2015Q2

REPORT INFORMATION
  Report Type: Spontaneous
  Country: US (occurrence: US)
  Receive Date: 20150609
  Receipt Date: 20150630
  Transmission Date: 20150821
  Serious: No
  Sender: FDA-Public Use
  Company Number: US-PFIZER INC-2015191634

PATIENT
  Sex: Female

DRUGS (1)
  1. DOXEPIN HCL [Suspect]
     Active Substance: DOXEPIN HYDROCHLORIDE
     Dosage: 1 DF, UNK
     Dates: start: 1982

REACTIONS (2)
  - Drug hypersensitivity [Unknown]
  - Sedation [Unknown]

NARRATIVE: CASE EVENT DATE: 1982
